FAERS Safety Report 4543513-4 (Version None)
Quarter: 2005Q1

REPORT INFORMATION
  Report Type: 
  Country: None (occurrence: None)
  Receive Date: 20050103
  Receipt Date: 20040909
  Transmission Date: 20050727
  Serious: Yes (Hospitalization)
  Sender: FDA-Public Use
  Company Number: AU-BRISTOL-MYERS SQUIBB COMPANY-12697124

PATIENT
  Age: 60 Year
  Sex: Male

DRUGS (9)
  1. IFOSFAMIDE [Suspect]
     Indication: LYMPHOMA
     Dates: start: 20040818
  2. VINORELBINE [Suspect]
     Indication: LYMPHOMA
     Dates: start: 20040705
  3. GEMZAR [Suspect]
     Indication: LYMPHOMA
     Route: 042
     Dates: start: 20040705
  4. MESNA [Concomitant]
  5. ONDANSETRON [Concomitant]
     Indication: ANTIEMETIC SUPPORTIVE CARE
  6. DEXAMETHASONE [Concomitant]
  7. RANITIDINE [Concomitant]
  8. FLUCONAZOLE [Concomitant]
  9. VALACYCLOVIR HCL [Concomitant]

REACTIONS (2)
  - HAEMATURIA [None]
  - SEPSIS [None]
